FAERS Safety Report 7215712-4 (Version None)
Quarter: 2011Q1

REPORT INFORMATION
  Report Type: 
  Country: None (occurrence: None)
  Receive Date: 20110104
  Receipt Date: 20110104
  Transmission Date: 20110831
  Serious: Yes (Hospitalization)
  Sender: FDA-Public Use
  Company Number: None

PATIENT
  Sex: Male
  Weight: 77.1115 kg

DRUGS (2)
  1. COPPERTONE -WATER BABIES- SPF 30 [Suspect]
  2. BANANA BOAT SPORT PERFORMANCE SPF 50 [Suspect]

REACTIONS (2)
  - LARYNGOSPASM [None]
  - VISION BLURRED [None]
